FAERS Safety Report 6354373-3 (Version None)
Quarter: 2009Q3

REPORT INFORMATION
  Report Type: 
  Country: None (occurrence: None)
  Receive Date: 20090914
  Receipt Date: 20090904
  Transmission Date: 20100115
  Serious: Yes (Hospitalization)
  Sender: FDA-Public Use
  Company Number: US-BIOGENIDEC-2008BI013770

PATIENT
  Age: 51 Year
  Sex: Female
  Weight: 78 kg

DRUGS (3)
  1. AVONEX [Suspect]
     Indication: MULTIPLE SCLEROSIS
     Route: 030
     Dates: start: 19990611, end: 20041001
  2. AVONEX [Suspect]
     Route: 030
     Dates: start: 20041001, end: 20071201
  3. AVONEX [Suspect]
     Route: 030
     Dates: start: 20071201

REACTIONS (9)
  - BURNING SENSATION [None]
  - DRUG INTOLERANCE [None]
  - GOITRE [None]
  - INFLUENZA LIKE ILLNESS [None]
  - NEUROPATHY PERIPHERAL [None]
  - THYROID DISORDER [None]
  - THYROID FUNCTION TEST ABNORMAL [None]
  - TREMOR [None]
  - VOCAL CORD POLYP [None]
